FAERS Safety Report 6564214-7 (Version None)
Quarter: 2010Q1

REPORT INFORMATION
  Report Type: 
  Country: None (occurrence: None)
  Receive Date: 20100201
  Receipt Date: 20100122
  Transmission Date: 20100710
  Serious: Yes (Hospitalization)
  Sender: FDA-Public Use
  Company Number: US-BIOGENIDEC-2009BI031231

PATIENT
  Age: 43 Year
  Sex: Female

DRUGS (2)
  1. TYSABRI [Suspect]
     Indication: MULTIPLE SCLEROSIS
     Route: 042
     Dates: start: 20080122
  2. LYBREL [Concomitant]
     Indication: ORAL CONTRACEPTION

REACTIONS (3)
  - ANKLE FRACTURE [None]
  - PULMONARY EMBOLISM [None]
  - THROMBOSIS [None]
